FAERS Safety Report 10218610 (Version 1)
Quarter: 2014Q1

REPORT INFORMATION
  Report Type: Spontaneous
  Country: US (occurrence: None)
  Receive Date: 20140306
  Receipt Date: 20140306
  Transmission Date: 20141002
  Serious: Yes (Other)
  Sender: FDA-Public Use
  Company Number: 163-21880-13054209

PATIENT
  Age: 78 Year
  Sex: Male
  Weight: 81.65 kg

DRUGS (2)
  1. REVLIMID (LENALIDOMIDE) (5 MILLIGRAM, CAPSULES) [Suspect]
     Indication: MYELODYSPLASTIC SYNDROME
     Route: 048
     Dates: start: 20130604
  2. PREDNISONE (PREDNISONE) [Concomitant]

REACTIONS (5)
  - Full blood count decreased [None]
  - Platelet count decreased [None]
  - Fatigue [None]
  - Abdominal discomfort [None]
  - White blood cell count decreased [None]
